FAERS Safety Report 7626131-0 (Version None)
Quarter: 2011Q3

REPORT INFORMATION
  Report Type: 
  Country: None (occurrence: None)
  Receive Date: 20110721
  Receipt Date: 20110714
  Transmission Date: 20111222
  Serious: Yes (Other)
  Sender: FDA-Public Use
  Company Number: CZ-PFIZER INC-2011160739

PATIENT
  Age: 35 Year
  Sex: Female

DRUGS (4)
  1. LAMOTRIGINE [Concomitant]
     Dosage: 600 MG, DAILY
     Dates: start: 20060101
  2. PHENYTOIN [Suspect]
     Dosage: 400 MG, DAILY
     Dates: start: 20060101
  3. VARENICLINE TARTRATE [Suspect]
  4. CITALOPRAM HYDROBROMIDE [Concomitant]
     Indication: DEPRESSION
     Dosage: UNK
     Dates: start: 20060101

REACTIONS (8)
  - TOXICITY TO VARIOUS AGENTS [None]
  - PYREXIA [None]
  - VISION BLURRED [None]
  - NYSTAGMUS [None]
  - PHOTOPHOBIA [None]
  - HEPATIC ENZYME INCREASED [None]
  - VERTIGO [None]
  - WEIGHT DECREASED [None]
